FAERS Safety Report 9286908 (Version 1)
Quarter: 2013Q2

REPORT INFORMATION
  Report Type: Spontaneous
  Country: JP (occurrence: JP)
  Receive Date: 20130513
  Receipt Date: 20130513
  Transmission Date: 20140414
  Serious: Yes (Hospitalization, Other)
  Sender: FDA-Public Use
  Company Number: JP-ROXANE LABORATORIES, INC.-2013-RO-00723RO

PATIENT
  Age: 7 Year
  Sex: Male

DRUGS (4)
  1. MERCAPTOPURINE [Suspect]
     Indication: ACUTE LYMPHOCYTIC LEUKAEMIA
  2. METHOTREXATE [Suspect]
     Indication: ACUTE LYMPHOCYTIC LEUKAEMIA
  3. DEXAMETHASONE [Suspect]
     Indication: HISTIOCYTOSIS HAEMATOPHAGIC
  4. GAMMA GLOBULIN [Suspect]
     Indication: HISTIOCYTOSIS HAEMATOPHAGIC

REACTIONS (4)
  - Leukopenia [Unknown]
  - Cytomegalovirus infection [Recovered/Resolved]
  - Histiocytosis haematophagic [Recovered/Resolved]
  - Retinitis [Not Recovered/Not Resolved]
